FAERS Safety Report 24324922 (Version 1)
Quarter: 2024Q3

REPORT INFORMATION
  Report Type: Spontaneous
  Country: US (occurrence: None)
  Receive Date: 20240916
  Receipt Date: 20240916
  Transmission Date: 20241016
  Serious: No
  Sender: Public
  Company Number: None

PATIENT
  Age: 47 Year
  Sex: Female
  Weight: 96.75 kg

DRUGS (3)
  1. PAXLOVID [Suspect]
     Active Substance: NIRMATRELVIR\RITONAVIR
     Indication: COVID-19
     Dosage: 3 TABLETS TWICE A DAY ORAL?
     Route: 048
     Dates: start: 20240913, end: 20240916
  2. MOUNJARO [Concomitant]
     Active Substance: TIRZEPATIDE
  3. LEVOXYL [Concomitant]
     Active Substance: LEVOTHYROXINE SODIUM

REACTIONS (19)
  - Dysgeusia [None]
  - Gastrooesophageal reflux disease [None]
  - Choking sensation [None]
  - Throat irritation [None]
  - Oropharyngeal pain [None]
  - Dizziness [None]
  - Ear pain [None]
  - Headache [None]
  - Eye pain [None]
  - Head discomfort [None]
  - Nonspecific reaction [None]
  - Mental disorder [None]
  - Fatigue [None]
  - Lip exfoliation [None]
  - Hot flush [None]
  - Hyperhidrosis [None]
  - Abdominal pain upper [None]
  - Nausea [None]
  - Decreased appetite [None]

NARRATIVE: CASE EVENT DATE: 20240913
